FAERS Safety Report 9516750 (Version 1)
Quarter: 2013Q1

REPORT INFORMATION
  Report Type: Spontaneous
  Country: GB (occurrence: None)
  Receive Date: 20120127
  Receipt Date: 20120127
  Transmission Date: 20140127
  Serious: Yes (Other)
  Sender: FDA-Public Use
  Company Number: 2012SP003488

PATIENT
  Age: 21 Year
  Sex: Female

DRUGS (2)
  1. NEXPLANON [Suspect]
     Indication: CONTRACEPTION
     Dosage: SBDE
     Dates: start: 20110916, end: 20120109
  2. FLUCLOXACILLIN [Suspect]
     Indication: INFECTED DERMAL CYST
     Route: 048
     Dates: start: 20111102, end: 20111109

REACTIONS (4)
  - Abortion spontaneous [None]
  - Drug interaction [None]
  - Pregnancy [None]
  - Exposure during pregnancy [None]
